FAERS Safety Report 16722554 (Version 4)
Quarter: 2019Q4

REPORT INFORMATION
  Report Type: Spontaneous
  Country: US (occurrence: US)
  Receive Date: 20190820
  Receipt Date: 20191223
  Transmission Date: 20200122
  Serious: Yes (Other)
  Sender: FDA-Public Use
  Company Number: US-IGSA-SR10008950

PATIENT
  Age: 54 Year
  Sex: Female
  Weight: 106.2 kg

DRUGS (14)
  1. PROGESTERONE. [Concomitant]
     Active Substance: PROGESTERONE
  2. GAMUNEX-C [Suspect]
     Active Substance: HUMAN IMMUNOGLOBULIN G
     Indication: DERMATOMYOSITIS
     Dosage: 120 G, Q.3WK.
     Route: 042
     Dates: start: 201902
  3. MYCOPHENOLATE MOFETIL. [Concomitant]
     Active Substance: MYCOPHENOLATE MOFETIL
  4. PREDNISONE. [Concomitant]
     Active Substance: PREDNISONE
  5. KLONOPIN [Concomitant]
     Active Substance: CLONAZEPAM
  6. ATOVAQUONE. [Concomitant]
     Active Substance: ATOVAQUONE
  7. VITAMIN D                          /00107901/ [Concomitant]
     Active Substance: ERGOCALCIFEROL
  8. BIOTIN [Concomitant]
     Active Substance: BIOTIN
  9. GARLIC                             /01570501/ [Concomitant]
     Active Substance: GARLIC
  10. TOPIRAMATE. [Concomitant]
     Active Substance: TOPIRAMATE
  11. IMITREX [Concomitant]
     Active Substance: SUMATRIPTAN SUCCINATE
  12. ESTRADIOL. [Concomitant]
     Active Substance: ESTRADIOL
  13. ACETAMINOPHEN. [Concomitant]
     Active Substance: ACETAMINOPHEN
  14. GAMUNEX-C [Suspect]
     Active Substance: HUMAN IMMUNOGLOBULIN G
     Dosage: 120 G, Q.3WK.
     Route: 042
     Dates: start: 201501

REACTIONS (1)
  - Rash [Recovered/Resolved]

NARRATIVE: CASE EVENT DATE: 201902
